FAERS Safety Report 18586649 (Version 1)
Quarter: 2020Q4

REPORT INFORMATION
  Report Type: Report from Study
  Country: GB (occurrence: GB)
  Receive Date: 20201207
  Receipt Date: 20201207
  Transmission Date: 20210114
  Serious: Yes (Hospitalization)
  Sender: FDA-Public Use
  Company Number: GB-BAYER-2020-252216

PATIENT
  Age: 71 Year
  Sex: Male
  Weight: 85 kg

DRUGS (3)
  1. HEPARIN [Concomitant]
     Active Substance: HEPARIN SODIUM
     Indication: ANTICOAGULANT THERAPY
  2. RED BLOOD CELLS [Concomitant]
     Active Substance: HUMAN RED BLOOD CELL
     Indication: PACKED RED BLOOD CELL TRANSFUSION
  3. APROTININ 10,000 KIU/ML INJECTION BP (APROTININ) [Suspect]
     Active Substance: APROTININ
     Indication: AORTIC VALVE REPLACEMENT
     Dosage: 600 MILLILITRE EVERY 1 DAY(S) LOADING DOSE 01 MILLION KIU PUMP PRIMING DOSE 02 MILLION KIU CONTINUOU
     Route: 065
     Dates: start: 20180719, end: 20180719

REACTIONS (3)
  - Blood creatinine increased [Recovered/Resolved]
  - Off label use [None]
  - Product use in unapproved indication [Unknown]

NARRATIVE: CASE EVENT DATE: 20180719
